FAERS Safety Report 15624364 (Version 1)
Quarter: 2018Q4

REPORT INFORMATION
  Report Type: Spontaneous
  Country: NL (occurrence: NL)
  Receive Date: 20181116
  Receipt Date: 20181116
  Transmission Date: 20190205
  Serious: Yes (Death)
  Sender: FDA-Public Use
  Company Number: NL-TEVA-2018-NL-975192

PATIENT
  Age: 49 Year
  Sex: Female
  Weight: 57 kg

DRUGS (15)
  1. DOCETAXEL OPLOSSING VOOR INFUUS, 20 MG/ML (MILLIGRAM PER MILLILITER) [Suspect]
     Active Substance: DOCETAXEL
     Indication: NON-SMALL CELL LUNG CANCER STAGE IV
     Dosage: KUUR 122 MG IN 1 UUR
     Route: 065
     Dates: start: 20180921
  2. OXYCODON (OXYNORM) [Concomitant]
     Dosage: IF NECESSARY 1 TO 6 X PER DAY 10 MILLIGRAMS
     Route: 065
  3. MAGNESIUMHYDROXIDE KAUWTAB [Concomitant]
     Dosage: 3 X PER DAY 724 MILLIGRAM
     Route: 065
  4. DEXAMETHASON TABLET  0,5MG [Concomitant]
     Dosage: ACCORDING TO SCHEDULE
     Route: 065
  5. NINTEDANIB [Concomitant]
     Active Substance: NINTEDANIB
     Dosage: 2 X PER DAG 200 MG
     Route: 065
     Dates: start: 20180911
  6. AMITRIPTYLINE [Concomitant]
     Active Substance: AMITRIPTYLINE
     Dosage: 25 MILLIGRAM DAILY; 1 X PER DAY 25 MILLIGRAM
     Route: 065
  7. ONDANSETRON SMELTTABLET 4MG [Concomitant]
     Dosage: VA
     Route: 065
  8. CELECOXIB. [Concomitant]
     Active Substance: CELECOXIB
     Dosage: 2 X PER DAY 200 MILLIGRAMS
     Route: 065
  9. OMEPRAZOL [Concomitant]
     Active Substance: OMEPRAZOLE
     Dosage: 40 MILLIGRAM DAILY; 1 X PER DAY 40 MILLIGRAMS
     Route: 065
  10. LACTULOSE. [Concomitant]
     Active Substance: LACTULOSE
     Dosage: 3 X PER DAY 15 MILLILITRES
     Route: 065
  11. PARACETAMOL [Concomitant]
     Active Substance: ACETAMINOPHEN
     Dosage: 4 DD 1 GRAM
     Route: 065
  12. SALBUTAMOL INHALATIEPOEDER 200UG/DO 60DO DISKUS [Concomitant]
     Dosage: ZN
     Route: 065
  13. FOLIUMZUUR TABLET 0,5MG 0.5 MILLIGRAM [Concomitant]
     Dosage: .5 MILLIGRAM DAILY; 1 X PER DAG 0,5 MILIGRAM
     Route: 065
  14. PREGABALINE [Concomitant]
     Active Substance: PREGABALIN
     Dosage: 2 X PER DAY 75 MILLIGRAM
     Route: 065
  15. DENOSUMAB PER MAAND [Concomitant]
     Dosage: 60 MILLIGRAM 1X PER MAAND
     Route: 065

REACTIONS (1)
  - Cardiac failure acute [Fatal]

NARRATIVE: CASE EVENT DATE: 20180926
